FAERS Safety Report 10803449 (Version 1)
Quarter: 2015Q1

REPORT INFORMATION
  Report Type: Spontaneous
  Country: US (occurrence: US)
  Receive Date: 20150217
  Receipt Date: 20150217
  Transmission Date: 20150721
  Serious: Yes (Other)
  Sender: FDA-Public Use
  Company Number: US-RECKITT BENCKISER PHARMACEUTICAL, INC-RB-075753-2015

PATIENT
  Sex: Male

DRUGS (1)
  1. BUPRENORPHINE [Suspect]
     Active Substance: BUPRENORPHINE
     Indication: DRUG DEPENDENCE
     Dosage: UNKNOWN
     Route: 064
     Dates: end: 2014

REACTIONS (2)
  - Deafness [Not Recovered/Not Resolved]
  - Foetal exposure during pregnancy [Recovered/Resolved]
